FAERS Safety Report 5235750-0 (Version None)
Quarter: 2007Q1

REPORT INFORMATION
  Report Type: 
  Country: None (occurrence: None)
  Receive Date: 20070212
  Receipt Date: 20070206
  Transmission Date: 20070707
  Serious: Yes (Life-Threatening, Hospitalization)
  Sender: FDA-Public Use
  Company Number: NLWYE538206FEB07

PATIENT
  Sex: Male
  Weight: 79 kg

DRUGS (8)
  1. EFFEXOR XR [Suspect]
     Indication: PANIC REACTION
     Dates: start: 20050301
  2. METFORMIN [Concomitant]
     Dates: start: 20050101
  3. PANTOZOL [Concomitant]
  4. CRESTOR [Concomitant]
  5. PREDNISONE [Concomitant]
     Dates: start: 20050101
  6. ACTONEL [Concomitant]
  7. EXELON [Suspect]
     Indication: DEMENTIA ALZHEIMER'S TYPE
     Dates: start: 20061004, end: 20061021
  8. AVANDIA [Concomitant]
     Dates: start: 20050101

REACTIONS (2)
  - ATRIOVENTRICULAR BLOCK COMPLETE [None]
  - CIRCULATORY COLLAPSE [None]
